FAERS Safety Report 5138734-6 (Version None)
Quarter: 2006Q4

REPORT INFORMATION
  Report Type: 
  Country: None (occurrence: None)
  Receive Date: 20061030
  Receipt Date: 20061017
  Transmission Date: 20070319
  Serious: Yes (Other)
  Sender: FDA-Public Use
  Company Number: BR-ROCHE-467880

PATIENT
  Age: 31 Year
  Sex: Female

DRUGS (1)
  1. XENICAL [Suspect]
     Indication: OBESITY
     Route: 048
     Dates: start: 20050415, end: 20050415

REACTIONS (4)
  - CHEST PAIN [None]
  - HYPERTENSION [None]
  - SWELLING [None]
  - TACHYCARDIA [None]
